FAERS Safety Report 23725539 (Version 1)
Quarter: 2024Q2

REPORT INFORMATION
  Report Type: Other
  Country: IN (occurrence: IN)
  Receive Date: 20240410
  Receipt Date: 20240410
  Transmission Date: 20240716
  Serious: Yes (Other)
  Sender: FDA-Public Use
  Company Number: IN-DEXPHARM-2024-0908

PATIENT
  Age: 50 Year
  Sex: Male

DRUGS (2)
  1. DEXAMETHASONE [Suspect]
     Active Substance: DEXAMETHASONE
     Indication: Acquired epidermolysis bullosa
     Dosage: NA
  2. CYCLOPHOSPHAMIDE [Suspect]
     Active Substance: CYCLOPHOSPHAMIDE
     Indication: Acquired epidermolysis bullosa
     Dosage: NA

REACTIONS (3)
  - Scedosporium infection [Recovered/Resolved]
  - Hyperglycaemia [Unknown]
  - Drug interaction [Unknown]
